FAERS Safety Report 23112382 (Version 6)
Quarter: 2025Q4

REPORT INFORMATION
  Report Type: Spontaneous
  Country: EU (occurrence: EU)
  Receive Date: 20231027
  Receipt Date: 20251017
  Transmission Date: 20260117
  Serious: Yes (Hospitalization, Other)
  Sender: AUROBINDO
  Company Number: EU-MLMSERVICE-20231016-4601441-1

PATIENT
  Age: 18 Year
  Sex: Male

DRUGS (1)
  1. IBUPROFEN [Suspect]
     Active Substance: IBUPROFEN
     Indication: Cheilitis
     Dosage: 400 MILLIGRAM
     Route: 065

REACTIONS (16)
  - Staphylococcal sepsis [Recovered/Resolved]
  - Lip infection [Recovered/Resolved]
  - Abscess of eyelid [Recovered/Resolved]
  - Septic embolus [Recovered/Resolved]
  - Skin infection [Recovered/Resolved]
  - Cellulitis [Recovered/Resolved]
  - Cellulitis gangrenous [Recovered/Resolved]
  - Condition aggravated [Recovered/Resolved]
  - Dyspnoea [Recovered/Resolved]
  - Cheilitis [Recovered/Resolved]
  - Chest pain [Recovered/Resolved]
  - Lip swelling [Recovered/Resolved]
  - Septic pulmonary embolism [Recovered/Resolved]
  - Intentional product misuse [Unknown]
  - Self-medication [Recovered/Resolved]
  - Product use in unapproved indication [Unknown]
